FAERS Safety Report 18569953 (Version 1)
Quarter: 2020Q4

REPORT INFORMATION
  Report Type: Spontaneous
  Country: US (occurrence: US)
  Receive Date: 20201202
  Receipt Date: 20201202
  Transmission Date: 20210114
  Serious: Yes (Other)
  Sender: FDA-Public Use
  Company Number: US-BRISTOL-MYERS SQUIBB COMPANY-BMS-2020-100824

PATIENT

DRUGS (3)
  1. RYTHMOL [PROPAFENONE] [Suspect]
     Active Substance: PROPAFENONE
     Indication: SINUS ARRHYTHMIA
     Route: 065
  2. ELIQUIS [Suspect]
     Active Substance: APIXABAN
     Indication: CEREBROVASCULAR ACCIDENT PROPHYLAXIS
     Route: 065
  3. XARELTO [Suspect]
     Active Substance: RIVAROXABAN
     Indication: SINUS ARRHYTHMIA
     Route: 065

REACTIONS (1)
  - Cardiac disorder [Unknown]
